FAERS Safety Report 9028667 (Version 11)
Quarter: 2017Q2

REPORT INFORMATION
  Report Type: Spontaneous
  Country: PT (occurrence: PT)
  Receive Date: 20130124
  Receipt Date: 20170414
  Transmission Date: 20170830
  Serious: Yes (Death, Hospitalization, Other)
  Sender: FDA-Public Use
  Company Number: PHFR2013GB000772

PATIENT
  Sex: Male

DRUGS (2)
  1. VOLTAROL [Suspect]
     Active Substance: DICLOFENAC SODIUM
     Indication: GOUT
     Dosage: 6 DF, QD
     Route: 048
  2. VOLTAROL [Suspect]
     Active Substance: DICLOFENAC SODIUM
     Dosage: 2 DF, TID
     Route: 065
     Dates: start: 201110, end: 201201

REACTIONS (8)
  - Drug dispensing error [Unknown]
  - Pulmonary embolism [Fatal]
  - Circulatory collapse [Unknown]
  - Gastric disorder [Unknown]
  - Dyspnoea [Fatal]
  - Overdose [Unknown]
  - Gastrointestinal haemorrhage [Fatal]
  - Deep vein thrombosis [Fatal]
